FAERS Safety Report 6759390-7 (Version None)
Quarter: 2010Q2

REPORT INFORMATION
  Report Type: 
  Country: None (occurrence: None)
  Receive Date: 20100528
  Receipt Date: 20100514
  Transmission Date: 20101027
  Serious: Yes (Life-Threatening, Hospitalization)
  Sender: FDA-Public Use
  Company Number: IPC201005-000134

PATIENT
  Age: 38 Year
  Sex: Male

DRUGS (4)
  1. ATENOLOL [Suspect]
  2. ASPIRIN [Suspect]
  3. CLOPIDOGREL [Suspect]
  4. SIMVASTATIN [Suspect]

REACTIONS (20)
  - ANTIPHOSPHOLIPID SYNDROME [None]
  - APHASIA [None]
  - BUNDLE BRANCH BLOCK RIGHT [None]
  - CEREBRAL HAEMATOMA [None]
  - CHEST PAIN [None]
  - CORONARY ARTERY OCCLUSION [None]
  - CORONARY ARTERY THROMBOSIS [None]
  - DISEASE RECURRENCE [None]
  - ECHOCARDIOGRAM ABNORMAL [None]
  - FALL [None]
  - HEART RATE INCREASED [None]
  - HYPOTENSION [None]
  - LOSS OF CONSCIOUSNESS [None]
  - PULMONARY EMBOLISM [None]
  - PULMONARY THROMBOSIS [None]
  - PULSE ABSENT [None]
  - THROMBOSIS IN DEVICE [None]
  - TROPONIN T INCREASED [None]
  - VENTRICULAR FIBRILLATION [None]
  - VESSEL PUNCTURE SITE HAEMORRHAGE [None]
